FAERS Safety Report 8233015-6 (Version None)
Quarter: 2012Q1

REPORT INFORMATION
  Report Type: 
  Country: None (occurrence: None)
  Receive Date: 20120326
  Receipt Date: 20120316
  Transmission Date: 20120608
  Serious: Yes (Hospitalization)
  Sender: FDA-Public Use
  Company Number: US-BIOGENIDEC-2012BI009586

PATIENT
  Age: 31 Year
  Sex: Female
  Weight: 107 kg

DRUGS (6)
  1. NSAIDS [Concomitant]
     Indication: HEADACHE
  2. TYSABRI [Suspect]
     Indication: MULTIPLE SCLEROSIS
     Route: 042
     Dates: start: 20091009, end: 20110706
  3. AMANTADINE HCL [Concomitant]
     Route: 048
     Dates: start: 20110601
  4. KEPPRA [Concomitant]
     Route: 048
     Dates: start: 20110804
  5. VITAMIN D [Concomitant]
     Route: 048
     Dates: start: 20100303
  6. WELLBUTRIN SR [Concomitant]
     Route: 048
     Dates: start: 20090501, end: 20110720

REACTIONS (1)
  - GRAND MAL CONVULSION [None]
